FAERS Safety Report 6320093-4 (Version None)
Quarter: 2009Q3

REPORT INFORMATION
  Report Type: 
  Country: None (occurrence: None)
  Receive Date: 20090822
  Receipt Date: 20081016
  Transmission Date: 20100115
  Serious: No
  Sender: FDA-Public Use
  Company Number: US-ABBOTT-08P-163-0482654-00

PATIENT
  Sex: Male

DRUGS (3)
  1. NIASPAN [Suspect]
     Indication: HIGH DENSITY LIPOPROTEIN DECREASED
     Route: 048
     Dates: start: 20080701
  2. NIASPAN [Suspect]
     Route: 048
  3. UNKNOWN HYPOTHYROIDISM MEDICATION [Concomitant]
     Indication: HYPOTHYROIDISM

REACTIONS (1)
  - FLUSHING [None]
